FAERS Safety Report 8682194 (Version 3)
Quarter: 2012Q4

REPORT INFORMATION
  Report Type: 
  Country: JP (occurrence: JP)
  Receive Date: 20120725
  Receipt Date: 20121126
  Transmission Date: 20130627
  Serious: Yes (Life-Threatening, Hospitalization)
  Sender: FDA-Public Use
  Company Number: JP-JHP PHARMACEUTICALS, LLC-JHP201200364

PATIENT
  Age: 52 Year
  Sex: Female

DRUGS (8)
  1. DANTRIUM [Suspect]
     Indication: NEUROLEPTIC MALIGNANT SYNDROME
     Dosage: 25 mg, tid
     Route: 048
     Dates: start: 20120709, end: 20120719
  2. DANTROLENE [Suspect]
     Indication: NEUROLEPTIC MALIGNANT SYNDROME
     Dosage: UNK
     Route: 042
     Dates: start: 20120703, end: 20120708
  3. RECOMODULIN [Concomitant]
     Indication: DISSEMINATED INTRAVASCULAR COAGULATION
     Dosage: UNK
     Dates: start: 20120703, end: 20120708
  4. OMEPRAL [Concomitant]
     Dosage: UNK
     Dates: start: 20120703, end: 20120709
  5. CERCINE [Concomitant]
     Indication: SCHIZOPHRENIA
     Dosage: UNK
     Dates: start: 20120709, end: 20120719
  6. TAKEPRON [Concomitant]
     Dosage: UNK
     Dates: start: 20120709, end: 20120713
  7. UNASYN S [Concomitant]
     Indication: PNEUMONIA
     Dosage: UNK
     Dates: start: 20120708, end: 20120713
  8. GASMOTIN [Concomitant]
     Dosage: UNK
     Dates: start: 20120709, end: 20120715

REACTIONS (2)
  - Atrioventricular block complete [Recovering/Resolving]
  - Pneumonia [Recovering/Resolving]
